FAERS Safety Report 7343708-0 (Version None)
Quarter: 2011Q1

REPORT INFORMATION
  Report Type: 
  Country: None (occurrence: None)
  Receive Date: 20110310
  Receipt Date: 20101115
  Transmission Date: 20110831
  Serious: No
  Sender: FDA-Public Use
  Company Number: A0892487A

PATIENT
  Age: 70 Year
  Sex: Female

DRUGS (2)
  1. NICORETTE [Suspect]
  2. NICOTINE POLACRILEX [Suspect]
     Dates: start: 20101028, end: 20101101

REACTIONS (3)
  - SCAB [None]
  - ORAL DISCOMFORT [None]
  - INTENTIONAL DRUG MISUSE [None]
